FAERS Safety Report 9852463 (Version 1)
Quarter: 2014Q1

REPORT INFORMATION
  Report Type: Spontaneous
  Country: US (occurrence: None)
  Receive Date: 20140127
  Receipt Date: 20140127
  Transmission Date: 20141002
  Serious: Yes (Hospitalization)
  Sender: FDA-Public Use
  Company Number: KAD201401-000075

PATIENT
  Age: 44 Year
  Sex: Male

DRUGS (17)
  1. RIBAVIRIN (RIBAVIRIN) [Suspect]
     Indication: HEPATITIS C
     Dosage: EVERY MORNING 400 MG AND EVENING 600 MG
  2. EFAVIRENZ\EMTRICITABINE\TENOFOVIR\TENOFOVIR DISOPROXIL FUMARATE [Suspect]
     Dosage: 600/200/300 MG, BY MOUTH, DAILY
  3. BOCEPREVIR (BOCEPREVIR) [Suspect]
     Indication: HEPATITIS C
     Dosage: 800 MG, THRICE DAILY
  4. PEGINTERFERON ALFA-2A OR PEGINTERFERON ALFA-2B [Suspect]
     Indication: HEPATITIS C
     Dosage: 120 MCG, EVERY 7 DAYS, SUBCUTANEOUS
     Route: 058
  5. DOXAZOSIN (DOXAZOSIN) [Suspect]
  6. TAMSULOSIN (TAMSULOSIN) [Suspect]
  7. QUETIAPINE (QUETIAPINE) [Suspect]
     Indication: AFFECTIVE DISORDER
     Dosage: 100 MG, EVERY EVENING (1-3 TABLETS)
  8. ESTRADIOL CYPIONATE\TESTOSTERONE CYPIONATE [Suspect]
     Indication: HYPOGONADISM
     Dosage: 200 MG, EVERY 14 DAYS, INTRAMUSCULAR
     Route: 030
  9. ESOMEPRAZOLE (ESOMEPRAZOLE) [Suspect]
  10. LITHIUM (LITHIUM) [Suspect]
     Dosage: 1200 MG, AT BEDTIME, 0.8 MMOL/L; 3 WEEKS POSTINCIDENT
  11. LOSARTAN (LOSARTAN) [Suspect]
  12. NAPROXEN (NAPROXEN) [Suspect]
     Indication: PAIN
     Dosage: 500 MG, TWICE DAILY AS NEEDED
  13. ACETAMINOPHEN/OXYCODONE [Suspect]
     Indication: PAIN
     Dosage: 5-325 MG, EVERY 6 H, AS NEEDED
  14. LOPERAMIDE [Suspect]
     Indication: DIARRHOEA
  15. CODEINE/GUAIFENESIN [Suspect]
     Indication: COUGH
     Dosage: 15 MG/5 ML, 10 ML 4 TIMES DAILY (AS NEEDED)
  16. CYCLOBENZAPRINE (CYCLOBENZAPRINE) [Suspect]
     Indication: MUSCLE SPASMS
     Dosage: 10 MG, EVERY 8 HOURS (AS NEEDED)
  17. ONDANSETRON (ONDANSETRON) [Suspect]
     Indication: NAUSEA
     Dosage: 4 MG, EVERY 6 HOURS

REACTIONS (5)
  - Priapism [None]
  - Nausea [None]
  - Vomiting [None]
  - No therapeutic response [None]
  - Drug interaction [None]
